FAERS Safety Report 9312192 (Version 1)
Quarter: 2013Q2

REPORT INFORMATION
  Report Type: Spontaneous
  Country: CN (occurrence: CN)
  Receive Date: 20130528
  Receipt Date: 20130528
  Transmission Date: 20140414
  Serious: Yes (Hospitalization)
  Sender: FDA-Public Use
  Company Number: CN-GILEAD-2013-0075676

PATIENT
  Age: 48 Year
  Sex: Male

DRUGS (1)
  1. ADEFOVIR DIPIVOXIL [Suspect]
     Indication: CHRONIC HEPATITIS B
     Dosage: UNK
     Dates: start: 200810

REACTIONS (4)
  - Genotype drug resistance test positive [Unknown]
  - Viral load increased [Unknown]
  - Alanine aminotransferase increased [Unknown]
  - Genotype drug resistance test positive [Unknown]
